FAERS Safety Report 14667171 (Version 4)
Quarter: 2018Q3

REPORT INFORMATION
  Report Type: Report from Study
  Country: US (occurrence: US)
  Receive Date: 20180322
  Receipt Date: 20180701
  Transmission Date: 20181010
  Serious: Yes (Hospitalization, Other)
  Sender: FDA-Public Use
  Company Number: US-BIOGEN-2018BI00544575

PATIENT
  Age: 73 Year
  Sex: Male

DRUGS (2)
  1. TECFIDERA [Suspect]
     Active Substance: DIMETHYL FUMARATE
     Dosage: MAINTENANCE DOSE
     Route: 048
     Dates: start: 20141216
  2. TECFIDERA [Suspect]
     Active Substance: DIMETHYL FUMARATE
     Indication: MULTIPLE SCLEROSIS
     Dosage: MAINTENANCE DOSE
     Route: 048

REACTIONS (10)
  - Chest pain [Unknown]
  - Multiple sclerosis relapse [Unknown]
  - Troponin increased [Unknown]
  - Transient ischaemic attack [Unknown]
  - Lacunar stroke [Unknown]
  - Dysarthria [Recovered/Resolved]
  - Escherichia urinary tract infection [Unknown]
  - Facial paralysis [Recovered/Resolved]
  - Cholecystectomy [Unknown]
  - Blood potassium decreased [Unknown]

NARRATIVE: CASE EVENT DATE: 2016
